FAERS Safety Report 14331130 (Version 1)
Quarter: 2017Q4

REPORT INFORMATION
  Report Type: Spontaneous
  Country: CL (occurrence: CL)
  Receive Date: 20171228
  Receipt Date: 20171228
  Transmission Date: 20180321
  Serious: Yes (Other)
  Sender: FDA-Public Use
  Company Number: CL-ROCHE-2044398

PATIENT
  Age: 11 Year
  Sex: Male
  Weight: 52 kg

DRUGS (9)
  1. OMEPRAZOL [Concomitant]
     Active Substance: OMEPRAZOLE
     Dosage: AT NIGHT
     Route: 065
  2. TRAMAL [Concomitant]
     Active Substance: TRAMADOL
  3. ACD A [Concomitant]
     Active Substance: ANHYDROUS CITRIC ACID\DEXTROSE MONOHYDRATE\SODIUM CITRATE
     Dosage: DROPS
     Route: 065
  4. ELCAL-D [Concomitant]
     Active Substance: CALCIUM CARBONATE\CHOLECALCIFEROL
     Route: 065
  5. MOMETASONE [Concomitant]
     Active Substance: MOMETASONE
     Route: 055
  6. LEVOCETIRIZINE [Concomitant]
     Active Substance: LEVOCETIRIZINE
     Dosage: AT NIGHT
     Route: 065
  7. ACTEMRA [Suspect]
     Active Substance: TOCILIZUMAB
     Indication: JUVENILE IDIOPATHIC ARTHRITIS
     Route: 042
     Dates: start: 20171212
  8. DULOXETINA [Concomitant]
     Active Substance: DULOXETINE
     Dosage: ON MORNINGS
     Route: 065
  9. PROGESTINE [Concomitant]
     Active Substance: PROGESTERONE

REACTIONS (2)
  - Cough [Recovered/Resolved]
  - Hyperhidrosis [Recovered/Resolved]

NARRATIVE: CASE EVENT DATE: 20171212
